FAERS Safety Report 6407558-1 (Version None)
Quarter: 2009Q4

REPORT INFORMATION
  Report Type: 
  Country: None (occurrence: None)
  Receive Date: 20091015
  Receipt Date: 20091001
  Transmission Date: 20100525
  Serious: Yes (Other)
  Sender: FDA-Public Use
  Company Number: POMP-1000725

PATIENT
  Age: 31 Year
  Sex: Female

DRUGS (4)
  1. MYOZYME [Suspect]
     Indication: GLYCOGEN STORAGE DISEASE TYPE II
     Dosage: 20 MG/KG, Q2W, INTRAVENOUS
     Route: 042
     Dates: start: 20070705
  2. CALCITRIOL [Concomitant]
  3. CALCIUM CARBONATE [Concomitant]
  4. GABAPENTIN [Concomitant]

REACTIONS (5)
  - COUGH [None]
  - DYSPNOEA [None]
  - HAEMOPTYSIS [None]
  - LEUKOPENIA [None]
  - LUNG INFECTION [None]
